FAERS Safety Report 10418366 (Version 1)
Quarter: 2014Q3

REPORT INFORMATION
  Report Type: Spontaneous
  Country: BR (occurrence: BR)
  Receive Date: 20140829
  Receipt Date: 20140829
  Transmission Date: 20150326
  Serious: Yes (Hospitalization, Other)
  Sender: FDA-Public Use
  Company Number: BR-SHIRE-BR201405269

PATIENT
  Sex: Male
  Weight: 31 kg

DRUGS (5)
  1. ELAPRASE [Suspect]
     Active Substance: IDURSULFASE
     Dosage: UNK UNK, UNKNOWN
     Route: 041
     Dates: start: 2014
  2. ELAPRASE [Suspect]
     Active Substance: IDURSULFASE
     Indication: MUCOPOLYSACCHARIDOSIS II
     Dosage: UNK UNK, UNKNOWN
     Route: 041
     Dates: start: 201102, end: 2013
  3. QUETIAPINE [Concomitant]
     Active Substance: QUETIAPINE
     Indication: ABNORMAL BEHAVIOUR
     Dosage: UNK, UNKNOWN
     Route: 065
  4. QUETIAPINE [Concomitant]
     Active Substance: QUETIAPINE
     Indication: PSYCHOTIC BEHAVIOUR
  5. RIVOTRIL [Concomitant]
     Active Substance: CLONAZEPAM
     Indication: SLEEP DISORDER
     Dosage: UNK, UNKNOWN
     Route: 065

REACTIONS (7)
  - Pneumonia [Unknown]
  - Infusion related reaction [Recovering/Resolving]
  - Pyrexia [Recovered/Resolved]
  - Vena cava thrombosis [Unknown]
  - Tremor [Recovering/Resolving]
  - Face oedema [Recovering/Resolving]
  - Hyperthermia [Recovering/Resolving]

NARRATIVE: CASE EVENT DATE: 2011
